FAERS Safety Report 20127632 (Version 2)
Quarter: 2022Q1

REPORT INFORMATION
  Report Type: Report from Study
  Country: FR (occurrence: FR)
  Receive Date: 20211129
  Receipt Date: 20220217
  Transmission Date: 20220423
  Serious: Yes (Death, Other)
  Sender: FDA-Public Use
  Company Number: FR-PFIZER INC-202101660445

PATIENT

DRUGS (2)
  1. GEMCITABINE HYDROCHLORIDE [Suspect]
     Active Substance: GEMCITABINE HYDROCHLORIDE
     Indication: Bile duct cancer
     Dosage: 1000 MG/M2, CYCLIC,(OVER 30 MINUTES, EACH ONCE DAILY ON DAYS 1 AND 8, EVERY 21 DAYS)
  2. CISPLATIN [Suspect]
     Active Substance: CISPLATIN
     Indication: Bile duct cancer
     Dosage: 25 MG/M2, CYCLIC,(OVER 1 HOUR, ONCE DAILY ON DAYS 1 AND 8, EVERY 21 DAYS)

REACTIONS (2)
  - Jaundice [Fatal]
  - Intestinal obstruction [Fatal]
